FAERS Safety Report 8900689 (Version 1)
Quarter: 2012Q4

REPORT INFORMATION
  Report Type: 
  Country: US (occurrence: US)
  Receive Date: 20121109
  Receipt Date: 20121109
  Transmission Date: 20130627
  Serious: Yes (Other)
  Sender: FDA-Public Use
  Company Number: US-PFIZER INC-2012278739

PATIENT
  Sex: Male

DRUGS (2)
  1. LYRICA [Suspect]
     Indication: NEUROPATHY
     Dosage: UNK
     Dates: start: 201012
  2. LYRICA [Suspect]
     Dosage: UNK
     Dates: start: 201104

REACTIONS (2)
  - Blister [Not Recovered/Not Resolved]
  - Pain [Not Recovered/Not Resolved]
